FAERS Safety Report 12909791 (Version 3)
Quarter: 2016Q4

REPORT INFORMATION
  Report Type: Report from Study
  Country: KR (occurrence: KR)
  Receive Date: 20161104
  Receipt Date: 20161128
  Transmission Date: 20170207
  Serious: Yes (Other)
  Sender: FDA-Public Use
  Company Number: PHHY2016KR140611

PATIENT
  Age: 71 Year
  Sex: Female

DRUGS (14)
  1. DEXAMETHASONE. [Concomitant]
     Active Substance: DEXAMETHASONE
     Indication: PRODUCT USED FOR UNKNOWN INDICATION
     Dosage: 5 MG, UNK
     Route: 065
     Dates: start: 20160822, end: 20160822
  2. LANSOPRAZOLE. [Concomitant]
     Active Substance: LANSOPRAZOLE
     Indication: ABDOMINAL PAIN UPPER
     Dosage: 15 MG, UNK
     Route: 065
     Dates: start: 20160411
  3. LIMAPROST [Concomitant]
     Active Substance: LIMAPROST
     Indication: SPINAL COLUMN STENOSIS
     Dosage: 5 UG, UNK
     Route: 065
     Dates: start: 20160411
  4. LOSARTAN. [Concomitant]
     Active Substance: LOSARTAN
     Indication: HYPERTENSION
     Dosage: 50 MG, UNK
     Route: 065
     Dates: start: 2011, end: 20160619
  5. VOTRIENT [Suspect]
     Active Substance: PAZOPANIB HYDROCHLORIDE
     Indication: RENAL CELL CARCINOMA
     Dosage: 600 MG, QD
     Route: 048
     Dates: start: 20160511, end: 20160821
  6. LOSARTAN. [Concomitant]
     Active Substance: LOSARTAN
     Dosage: 25 MG, UNK
     Route: 065
     Dates: start: 20160620
  7. MEGESTROL [Concomitant]
     Active Substance: MEGESTROL
     Indication: PRODUCT USED FOR UNKNOWN INDICATION
     Dosage: 625 MG, UNK
     Route: 065
     Dates: start: 20160425, end: 20160610
  8. CHLORPHENAMINE [Concomitant]
     Active Substance: CHLORPHENIRAMINE MALEATE
     Indication: PRODUCT USED FOR UNKNOWN INDICATION
     Dosage: 4 MG, UNK
     Route: 065
     Dates: start: 20160822, end: 20160822
  9. TARGIN [Concomitant]
     Active Substance: NALOXONE HYDROCHLORIDE\OXYCODONE HYDROCHLORIDE
     Indication: RENAL CELL CARCINOMA
     Dosage: 1 DF, UNK
     Route: 065
     Dates: start: 20160411
  10. PGE 1 [Concomitant]
     Indication: SPINAL COLUMN STENOSIS
     Dosage: 5 UG, UNK
     Route: 065
     Dates: start: 20160414
  11. PREDNISOLONE. [Concomitant]
     Active Substance: PREDNISOLONE
     Indication: RHEUMATOID ARTHRITIS
     Dosage: 10 MG, UNK
     Route: 065
     Dates: start: 20160822
  12. METOCLOPRAMIDE. [Concomitant]
     Active Substance: METOCLOPRAMIDE
     Indication: PRODUCT USED FOR UNKNOWN INDICATION
     Dosage: 5 MG, UNK
     Route: 065
     Dates: start: 20160511, end: 20160515
  13. OXYCODONE HYDROCHLORIDE. [Concomitant]
     Active Substance: OXYCODONE HYDROCHLORIDE
     Indication: RENAL CELL CARCINOMA
     Dosage: 5 MG, UNK
     Route: 065
     Dates: start: 20160411
  14. RIVAROXABAN [Concomitant]
     Active Substance: RIVAROXABAN
     Indication: INFERIOR VENA CAVAL OCCLUSION
     Dosage: 20 MG, UNK
     Route: 065
     Dates: start: 20160411

REACTIONS (5)
  - Dyspnoea [Unknown]
  - Malignant neoplasm progression [Not Recovered/Not Resolved]
  - Anaemia [Not Recovered/Not Resolved]
  - Metastases to liver [Not Recovered/Not Resolved]
  - Fatigue [Not Recovered/Not Resolved]

NARRATIVE: CASE EVENT DATE: 20160806
